FAERS Safety Report 10565208 (Version 1)
Quarter: 2014Q4

REPORT INFORMATION
  Report Type: Not Available
  Country: US (occurrence: US)
  Receive Date: 20141105
  Receipt Date: 20141105
  Transmission Date: 20150529
  Serious: No
  Sender: FDA-Public Use
  Company Number: US-LUPIN PHARMACEUTICALS INC.-E2B_00001556

PATIENT
  Age: 58 Year
  Sex: Male
  Weight: 108.05 kg

DRUGS (2)
  1. LISINOPRIL TABLETS USP 5 MG [Suspect]
     Active Substance: LISINOPRIL
     Route: 048
     Dates: start: 20131216, end: 20131217
  2. LISINOPRIL TABLETS USP 5 MG [Suspect]
     Active Substance: LISINOPRIL
     Indication: HYPERTENSION
     Route: 048
     Dates: start: 201306, end: 20131213

REACTIONS (6)
  - Headache [Recovered/Resolved]
  - Feeling hot [Recovered/Resolved]
  - Swelling [Recovered/Resolved]
  - Swelling face [Recovered/Resolved]
  - Paraesthesia [Recovered/Resolved]
  - Nausea [Recovered/Resolved]

NARRATIVE: CASE EVENT DATE: 20131130
